FAERS Safety Report 4344259-8 (Version None)
Quarter: 2004Q2

REPORT INFORMATION
  Report Type: 
  Country: None (occurrence: None)
  Receive Date: 20040419
  Receipt Date: 20040123
  Transmission Date: 20050107
  Serious: Yes (Hospitalization)
  Sender: FDA-Public Use
  Company Number: A-CH2003-03498

PATIENT
  Age: 18 Year
  Sex: Female

DRUGS (7)
  1. TRACLEER [Suspect]
     Indication: PULMONARY HYPERTENSION
     Dosage: 62.5 MG, BID, ORAL  : 125 MG, BID, ORAL : 62.5 MG, BID, ORAL
     Route: 048
     Dates: start: 20030713, end: 20030813
  2. TRACLEER [Suspect]
     Indication: PULMONARY HYPERTENSION
     Dosage: 62.5 MG, BID, ORAL  : 125 MG, BID, ORAL : 62.5 MG, BID, ORAL
     Route: 048
     Dates: start: 20030814, end: 20031210
  3. TRACLEER [Suspect]
     Indication: PULMONARY HYPERTENSION
     Dosage: 62.5 MG, BID, ORAL  : 125 MG, BID, ORAL : 62.5 MG, BID, ORAL
     Route: 048
     Dates: start: 20031223
  4. PREVISCAN (FLUINDIONE) [Concomitant]
  5. STILNOX (ZOLPIDEM) [Concomitant]
  6. OXYGEN [Concomitant]
  7. COUMADIN [Concomitant]

REACTIONS (6)
  - DRUG INEFFECTIVE [None]
  - DYSPNOEA EXACERBATED [None]
  - EOSINOPHILIA [None]
  - FATIGUE [None]
  - GENERAL PHYSICAL HEALTH DETERIORATION [None]
  - OEDEMA [None]
